FAERS Safety Report 7230140-3 (Version None)
Quarter: 2011Q1

REPORT INFORMATION
  Report Type: 
  Country: None (occurrence: None)
  Receive Date: 20110118
  Receipt Date: 20110111
  Transmission Date: 20110831
  Serious: Yes (Other)
  Sender: FDA-Public Use
  Company Number: US-BAYER-2011-003803

PATIENT
  Sex: Female

DRUGS (2)
  1. LOESTRIN 1.5/30 [Suspect]
     Dosage: UNK
     Dates: start: 20101001
  2. YAZ [Suspect]
     Indication: MENSTRUATION IRREGULAR
     Dosage: UNK
     Dates: start: 20061101, end: 20101001

REACTIONS (4)
  - ANXIETY [None]
  - PHARYNGEAL OEDEMA [None]
  - DIARRHOEA [None]
  - PALPITATIONS [None]
